FAERS Safety Report 22123404 (Version 1)
Quarter: 2023Q1

REPORT INFORMATION
  Report Type: Spontaneous
  Country: BE (occurrence: None)
  Receive Date: 20230322
  Receipt Date: 20230322
  Transmission Date: 20230418
  Serious: Yes (Other)
  Sender: FDA-Public Use
  Company Number: 2022A117832

PATIENT
  Sex: Female

DRUGS (9)
  1. FASENRA [Suspect]
     Active Substance: BENRALIZUMAB
     Indication: Severe asthma with fungal sensitisation
     Dosage: 30 MG EVERY EIGHT WEEKS, RECEIVED AT +/-6 WEEKS OF PREGNANCY, THEN STOP
     Route: 058
     Dates: start: 201809, end: 20200806
  2. PANTOMED [Concomitant]
     Indication: Gastrooesophageal reflux disease
     Dosage: 40MG 1X
     Dates: start: 20200326, end: 20200826
  3. OMEPRAZOLE [Concomitant]
     Active Substance: OMEPRAZOLE
     Indication: Gastrooesophageal reflux disease
     Dosage: 40MG 1X
  4. DIHYDROCODEINE BITARTRATE [Concomitant]
     Active Substance: DIHYDROCODEINE BITARTRATE
     Indication: Cough
  5. BECLOMETHASONE DIPROPIONATE\FORMOTEROL FUMARATE [Concomitant]
     Active Substance: BECLOMETHASONE DIPROPIONATE\FORMOTEROL FUMARATE
     Indication: Asthma
     Dosage: 200/6 2X2
     Dates: start: 202002
  6. SPIRIVA [Concomitant]
     Active Substance: TIOTROPIUM BROMIDE MONOHYDRATE
     Dosage: 10/20 OR 15 WEEKS OF PREGNANCY
  7. BILASTINE [Concomitant]
     Active Substance: BILASTINE
     Dosage: RECEIVED FROM THE 6TH TO 8TH WEEK OF PREGNANCY
  8. MEDROL [Concomitant]
     Active Substance: METHYLPREDNISOLONE
     Dosage: ALMOST THE WHOLE PREGNANCY
  9. XOLAIR [Concomitant]
     Active Substance: OMALIZUMAB
     Indication: Asthma
     Dosage: 600MG/15D 11/20, OR 20 WEEKS OF PREGNANCY

REACTIONS (3)
  - Exposure during pregnancy [Unknown]
  - Premature delivery [Unknown]
  - Off label use [Unknown]
